FAERS Safety Report 4714308-3 (Version None)
Quarter: 2005Q3

REPORT INFORMATION
  Report Type: 
  Country: None (occurrence: None)
  Receive Date: 20050714
  Receipt Date: 20050711
  Transmission Date: 20060218
  Serious: Yes (Life-Threatening, Hospitalization)
  Sender: FDA-Public Use
  Company Number: PHFR2005GB02418

PATIENT
  Age: 82 Year
  Sex: Female

DRUGS (8)
  1. DICLOFENAC SODIUM [Suspect]
     Indication: PAIN
     Dosage: 50 MG, TID
     Route: 048
     Dates: start: 20050616
  2. WARFARIN [Suspect]
     Indication: ATRIAL FIBRILLATION
     Dosage: 1MG WED/SUN 2MG/OTHER DAYS
     Route: 065
  3. PANTOPRAZOLE [Concomitant]
     Dosage: 40 MG, QD
     Route: 065
  4. PREDNISOLONE [Concomitant]
     Dosage: 5 MG, QD
     Route: 065
  5. DOXAZOSIN [Concomitant]
     Dosage: 4 MG, QD
     Route: 065
  6. AMLODIPINE [Concomitant]
     Dosage: 5 MG, QD
     Route: 065
  7. CEPHALEXIN [Concomitant]
     Route: 065
  8. BENDROFLUAZIDE [Concomitant]
     Dosage: 2.5 MG, QD
     Route: 065

REACTIONS (6)
  - BLOOD CREATININE INCREASED [None]
  - BLOOD POTASSIUM INCREASED [None]
  - BLOOD UREA INCREASED [None]
  - DRUG INTERACTION [None]
  - INTERNATIONAL NORMALISED RATIO INCREASED [None]
  - RENAL FAILURE ACUTE [None]
